FAERS Safety Report 4407553-8 (Version None)
Quarter: 2004Q3

REPORT INFORMATION
  Report Type: 
  Country: None (occurrence: None)
  Receive Date: 20040721
  Receipt Date: 20040706
  Transmission Date: 20050211
  Serious: Yes (Hospitalization)
  Sender: FDA-Public Use
  Company Number: A02200402151

PATIENT
  Age: 67 Year
  Sex: Female

DRUGS (7)
  1. ZOLPIDEM TARTRATE [Suspect]
     Indication: SLEEP DISORDER
     Dosage: 10 MG ONCE ORAL
     Route: 048
     Dates: start: 20040610, end: 20040610
  2. EFFERALGAN - (PARACETAMOL CODEINE [Suspect]
     Indication: TOOTHACHE
     Dosage: 4240 MG QD ORAL
     Route: 048
     Dates: start: 20040610, end: 20040610
  3. ATORVASTATIN CALCIUM [Concomitant]
  4. PRAVASTATIN [Concomitant]
  5. GLYBURIDE [Concomitant]
  6. GLUCOPHAGE [Concomitant]
  7. COZAAR [Concomitant]

REACTIONS (8)
  - BLOOD AMYLASE INCREASED [None]
  - CONTUSION [None]
  - CYTOLYTIC HEPATITIS [None]
  - HEPATIC STEATOSIS [None]
  - MULTIPLE FRACTURES [None]
  - ROAD TRAFFIC ACCIDENT [None]
  - SOMNOLENCE [None]
  - SUDDEN ONSET OF SLEEP [None]
